FAERS Safety Report 13721790 (Version 1)
Quarter: 2017Q3

REPORT INFORMATION
  Report Type: Spontaneous
  Country: CH (occurrence: CH)
  Receive Date: 20170706
  Receipt Date: 20170706
  Transmission Date: 20171127
  Serious: Yes (Life-Threatening, Hospitalization, Disabling)
  Sender: FDA-Public Use
  Company Number: CH-BAYER-2017-124654

PATIENT
  Age: 25 Year
  Sex: Female
  Weight: 71 kg

DRUGS (1)
  1. JAYDESS [Suspect]
     Active Substance: LEVONORGESTREL
     Indication: CONTRACEPTION
     Dosage: 14 MCG/24HR, CONT
     Route: 015
     Dates: start: 20160610

REACTIONS (3)
  - Ectopic pregnancy [Unknown]
  - Intra-abdominal haemorrhage [None]
  - Drug ineffective [Unknown]

NARRATIVE: CASE EVENT DATE: 20170410
